FAERS Safety Report 5587703-0 (Version None)
Quarter: 2008Q1

REPORT INFORMATION
  Report Type: 
  Country: None (occurrence: None)
  Receive Date: 20080108
  Receipt Date: 20071228
  Transmission Date: 20080703
  Serious: Yes (Hospitalization)
  Sender: FDA-Public Use
  Company Number: 2007BI027149

PATIENT
  Age: 53 Year
  Sex: Male
  Weight: 73.9363 kg

DRUGS (1)
  1. AVONEX [Suspect]
     Indication: MULTIPLE SCLEROSIS
     Dosage: 30 UG; QW; IM
     Route: 030
     Dates: start: 20000101, end: 20071101

REACTIONS (3)
  - CORONARY ARTERY OCCLUSION [None]
  - DISCOMFORT [None]
  - MYOCARDIAL INFARCTION [None]
